FAERS Safety Report 7851455-1 (Version None)
Quarter: 2011Q4

REPORT INFORMATION
  Report Type: 
  Country: None (occurrence: None)
  Receive Date: 20111026
  Receipt Date: 20111019
  Transmission Date: 20120403
  Serious: Yes (Hospitalization, Other)
  Sender: FDA-Public Use
  Company Number: DK-JNJFOC-20111007909

PATIENT
  Sex: Male
  Weight: 81 kg

DRUGS (12)
  1. CYCLOPHOSPHAMIDE [Suspect]
     Route: 042
     Dates: start: 20110822
  2. FILGRASTIM [Suspect]
     Route: 042
     Dates: start: 20110905
  3. PREDNISONE [Suspect]
     Indication: DIFFUSE LARGE B-CELL LYMPHOMA
     Route: 048
     Dates: start: 20110822
  4. FILGRASTIM [Suspect]
     Indication: DIFFUSE LARGE B-CELL LYMPHOMA
     Route: 042
     Dates: start: 20110823
  5. VINCRISTINE [Suspect]
     Route: 042
     Dates: start: 20110822
  6. DOXORUBICIN HCL [Suspect]
     Route: 042
     Dates: start: 20110822
  7. MABTHERA [Suspect]
     Route: 042
     Dates: start: 20110905
  8. VINCRISTINE [Suspect]
     Indication: DIFFUSE LARGE B-CELL LYMPHOMA
     Route: 042
     Dates: start: 20110905
  9. DOXORUBICIN HCL [Suspect]
     Indication: DIFFUSE LARGE B-CELL LYMPHOMA
     Route: 042
     Dates: start: 20110905
  10. MABTHERA [Suspect]
     Indication: DIFFUSE LARGE B-CELL LYMPHOMA
     Route: 042
     Dates: start: 20110822
  11. CYCLOPHOSPHAMIDE [Suspect]
     Indication: DIFFUSE LARGE B-CELL LYMPHOMA
     Route: 042
     Dates: start: 20110905
  12. PREDNISONE [Suspect]
     Route: 048
     Dates: start: 20110905

REACTIONS (3)
  - KLEBSIELLA INFECTION [None]
  - DIABETES MELLITUS [None]
  - DEEP VEIN THROMBOSIS [None]
